FAERS Safety Report 7521975-8 (Version None)
Quarter: 2011Q2

REPORT INFORMATION
  Report Type: 
  Country: None (occurrence: None)
  Receive Date: 20110603
  Receipt Date: 20110531
  Transmission Date: 20111010
  Serious: Yes (Life-Threatening, Hospitalization)
  Sender: FDA-Public Use
  Company Number: US-CELGENEUS-163-CCAZA-11060133

PATIENT
  Sex: Male
  Weight: 130 kg

DRUGS (2)
  1. MIDOSTAURIN [Suspect]
     Dosage: 75 MILLIGRAM
     Route: 048
     Dates: start: 20110524, end: 20110530
  2. AZACITIDINE [Suspect]
     Dosage: 75 MILLIGRAM/SQ. METER
     Route: 051
     Dates: start: 20110512, end: 20110518

REACTIONS (2)
  - MOUTH HAEMORRHAGE [None]
  - INFECTION [None]
